FAERS Safety Report 6273993-8 (Version None)
Quarter: 2009Q3

REPORT INFORMATION
  Report Type: 
  Country: None (occurrence: None)
  Receive Date: 20090720
  Receipt Date: 20090713
  Transmission Date: 20100115
  Serious: Yes (Hospitalization)
  Sender: FDA-Public Use
  Company Number: ES-GENENTECH-286861

PATIENT
  Sex: Male
  Weight: 77 kg

DRUGS (14)
  1. BLINDED ANTI-CD40 [Suspect]
     Indication: DIFFUSE LARGE B-CELL LYMPHOMA
     Dosage: 8 MG/KG, 1/WEEK
     Route: 042
     Dates: start: 20090513
  2. BLINDED PLACEBO [Suspect]
     Indication: DIFFUSE LARGE B-CELL LYMPHOMA
     Dosage: 8 MG/KG, 1/WEEK
     Route: 042
     Dates: start: 20090513
  3. BLINDED ANTI-CD40 [Suspect]
     Dosage: 2 MG/KG, X1
     Route: 042
     Dates: start: 20090505, end: 20090505
  4. BLINDED PLACEBO [Suspect]
     Dosage: 2 MG/KG, X1
     Route: 042
     Dates: start: 20090505, end: 20090505
  5. BLINDED ANTI-CD40 [Suspect]
     Dosage: 4 MG/KG, X1
     Route: 042
     Dates: start: 20090508, end: 20090508
  6. BLINDED PLACEBO [Suspect]
     Dosage: 4 MG/KG, X1
     Route: 042
     Dates: start: 20090508, end: 20090508
  7. RITUXAN [Suspect]
     Indication: DIFFUSE LARGE B-CELL LYMPHOMA
     Dosage: 375 MG/M2, Q3W
     Route: 042
     Dates: start: 20090504
  8. ETOPOSIDE [Suspect]
     Indication: DIFFUSE LARGE B-CELL LYMPHOMA
     Dosage: 100 MG/M2, Q3W
     Route: 042
     Dates: start: 20090506
  9. ETOPOSIDE [Suspect]
     Dosage: 100 MG/M2, Q3W
     Route: 042
     Dates: start: 20090507
  10. ETOPOSIDE [Suspect]
     Dosage: 100 MG/M2, Q3W
     Route: 042
     Dates: start: 20090508
  11. CARBOPLATIN [Suspect]
     Indication: DIFFUSE LARGE B-CELL LYMPHOMA
     Dosage: 5 UNK, Q3W
     Route: 042
     Dates: start: 20090507
  12. IFOSFAMIDE [Suspect]
     Indication: DIFFUSE LARGE B-CELL LYMPHOMA
     Dosage: 5 G/M2, Q3W
     Route: 042
     Dates: start: 20090507
  13. INSULIN [Concomitant]
     Indication: DRUG USE FOR UNKNOWN INDICATION
     Dosage: UNK
     Dates: start: 20081224
  14. TROMALYT [Concomitant]
     Indication: DRUG USE FOR UNKNOWN INDICATION
     Dosage: UNK
     Dates: start: 20081203

REACTIONS (1)
  - FEBRILE NEUTROPENIA [None]
